FAERS Safety Report 4810754-8 (Version None)
Quarter: 2005Q4

REPORT INFORMATION
  Report Type: 
  Country: None (occurrence: None)
  Receive Date: 20051026
  Receipt Date: 20050722
  Transmission Date: 20060501
  Serious: Yes (Hospitalization, Disabling)
  Sender: FDA-Public Use
  Company Number: US-MERCK-0507USA03759

PATIENT
  Age: 57 Year
  Sex: Male
  Weight: 88 kg

DRUGS (6)
  1. VIOXX [Suspect]
     Indication: ARTHRITIS
     Route: 048
     Dates: start: 20000502, end: 20030701
  2. AMBIEN [Concomitant]
     Indication: INSOMNIA
     Route: 065
  3. GLYBURIDE [Concomitant]
     Indication: DIABETES MELLITUS
     Route: 065
  4. LIPITOR [Concomitant]
     Indication: BLOOD CHOLESTEROL INCREASED
     Route: 065
  5. NIFEDIPINE [Concomitant]
     Indication: HYPERTENSION
     Route: 065
  6. METOPROLOL [Concomitant]
     Indication: HYPERTENSION
     Route: 065

REACTIONS (10)
  - ANGINA PECTORIS [None]
  - ARTERIOSCLEROSIS [None]
  - BACTERIAL INFECTION [None]
  - COUGH [None]
  - HYPOTHYROIDISM [None]
  - INFECTION [None]
  - INSOMNIA [None]
  - MYOCARDIAL INFARCTION [None]
  - PARKINSON'S DISEASE [None]
  - SLEEP APNOEA SYNDROME [None]
